FAERS Safety Report 13939941 (Version 1)
Quarter: 2017Q3

REPORT INFORMATION
  Report Type: Spontaneous
  Country: CA (occurrence: CA)
  Receive Date: 20170906
  Receipt Date: 20170906
  Transmission Date: 20171127
  Serious: Yes (Other)
  Sender: FDA-Public Use
  Company Number: CA-TEVA-803639ACC

PATIENT
  Age: 70 Year
  Sex: Female

DRUGS (1)
  1. TEVA-MOXIFLOXACIN [Suspect]
     Active Substance: MOXIFLOXACIN

REACTIONS (10)
  - Haemorrhage [Unknown]
  - Product substitution issue [Unknown]
  - Sinus pain [Unknown]
  - Dizziness [Unknown]
  - Mouth haemorrhage [Unknown]
  - Vision blurred [Unknown]
  - Oral pain [Unknown]
  - Pruritus [Unknown]
  - Nausea [Unknown]
  - Headache [Unknown]
